FAERS Safety Report 22813874 (Version 2)
Quarter: 2024Q1

REPORT INFORMATION
  Report Type: Spontaneous
  Country: US (occurrence: US)
  Receive Date: 20230811
  Receipt Date: 20240228
  Transmission Date: 20240409
  Serious: Yes (Hospitalization, Other)
  Sender: FDA-Public Use
  Company Number: US-PFIZER INC-202300251538

PATIENT
  Age: 40 Year
  Sex: Female
  Weight: 97.52 kg

DRUGS (3)
  1. OXBRYTA [Suspect]
     Active Substance: VOXELOTOR
     Indication: Sickle cell disease
     Dosage: UNK
  2. OXBRYTA [Suspect]
     Active Substance: VOXELOTOR
     Dosage: THREE TABLETS ONCE A DAY BY MOUTH
     Route: 048
     Dates: start: 2023
  3. FOLIC ACID [Suspect]
     Active Substance: FOLIC ACID

REACTIONS (2)
  - Sickle cell anaemia with crisis [Unknown]
  - Rash [Not Recovered/Not Resolved]

NARRATIVE: CASE EVENT DATE: 20230101
